FAERS Safety Report 9300415 (Version 1)
Quarter: 2013Q2

REPORT INFORMATION
  Report Type: Spontaneous
  Country: GB (occurrence: GB)
  Receive Date: 20130521
  Receipt Date: 20130521
  Transmission Date: 20140414
  Serious: Yes (Death, Other)
  Sender: FDA-Public Use
  Company Number: GB-PFIZER INC-2013153857

PATIENT
  Sex: Male

DRUGS (1)
  1. XALKORI [Suspect]
     Dosage: 250 MG, 2X/DAY

REACTIONS (2)
  - Post procedural complication [Fatal]
  - Oesophageal obstruction [Unknown]
